FAERS Safety Report 17511130 (Version 2)
Quarter: 2020Q2

REPORT INFORMATION
  Report Type: Spontaneous
  Country: US (occurrence: US)
  Receive Date: 20200306
  Receipt Date: 20200604
  Transmission Date: 20200713
  Serious: No
  Sender: FDA-Public Use
  Company Number: US-HARMONY BIOSCIENCES-2020HMY00100

PATIENT
  Age: 18 Year
  Sex: Male
  Weight: 86.17 kg

DRUGS (11)
  1. ADDERALL XR [Concomitant]
     Active Substance: AMPHETAMINE ASPARTATE\AMPHETAMINE SULFATE\DEXTROAMPHETAMINE SACCHARATE\DEXTROAMPHETAMINE SULFATE
  2. CALCIUM + D3 [Concomitant]
     Active Substance: CALCIUM\CHOLECALCIFEROL
  3. ONGUARD SOFTGELS (DOTERRA) [Concomitant]
  4. WAKIX [Suspect]
     Active Substance: PITOLISANT HYDROCHLORIDE
     Indication: HYPERSOMNIA
     Dosage: 17.8 MG, 1X/DAY
     Route: 048
     Dates: start: 20200207, end: 20200213
  5. ARMODAFINIL. [Concomitant]
     Active Substance: ARMODAFINIL
  6. WAKIX [Suspect]
     Active Substance: PITOLISANT HYDROCHLORIDE
     Indication: HYPERSOMNIA
     Dosage: 8.9 MG, 1X/DAY FOR 7 DAYS
     Route: 048
     Dates: start: 20200131, end: 20200206
  7. IRON [Concomitant]
     Active Substance: IRON
  8. MULTIVITAMINS [Concomitant]
     Active Substance: VITAMINS
  9. WAKIX [Suspect]
     Active Substance: PITOLISANT HYDROCHLORIDE
     Dosage: 35.6 MG, 1X/DAY EVERY MORNING
     Route: 048
     Dates: start: 20200214, end: 2020
  10. VITAMIN B12 [Concomitant]
     Active Substance: CYANOCOBALAMIN
  11. VITAMIN D3 [Concomitant]
     Active Substance: CHOLECALCIFEROL

REACTIONS (4)
  - Hypersomnia [Not Recovered/Not Resolved]
  - Somnolence [Not Recovered/Not Resolved]
  - Unevaluable event [Unknown]
  - Drug ineffective for unapproved indication [Recovered/Resolved]

NARRATIVE: CASE EVENT DATE: 2020
